FAERS Safety Report 19271829 (Version 1)
Quarter: 2021Q2

REPORT INFORMATION
  Report Type: Spontaneous
  Country: IT (occurrence: IT)
  Receive Date: 20210519
  Receipt Date: 20210519
  Transmission Date: 20210717
  Serious: Yes (Other)
  Sender: FDA-Public Use
  Company Number: IT-AUROBINDO-AUR-APL-2021-019950

PATIENT
  Age: 33 Year
  Sex: Female
  Weight: 108 kg

DRUGS (8)
  1. ACYCLOVIR. [Suspect]
     Active Substance: ACYCLOVIR
     Indication: LEUKOPENIA
  2. FLUOXETINE [Concomitant]
     Active Substance: FLUOXETINE HYDROCHLORIDE
     Indication: MIGRAINE
     Dosage: UNK
     Route: 065
  3. MAVENCLAD [Suspect]
     Active Substance: CLADRIBINE
     Dosage: WEEK TWO THERAPY: TWO TABLETS FOR 4 DAYS AND ONE TABLET ON DAY 5.
     Route: 065
     Dates: start: 20210211, end: 20210215
  4. LAROXYL [Concomitant]
     Active Substance: AMITRIPTYLINE HYDROCHLORIDE
     Indication: MIGRAINE
     Dosage: UNK
     Route: 065
  5. ACYCLOVIR. [Suspect]
     Active Substance: ACYCLOVIR
     Indication: LYMPHOPENIA
     Dosage: 400X2 (UNSPECIFIED UNITS)
     Route: 065
  6. RAMIPRIL. [Suspect]
     Active Substance: RAMIPRIL
     Indication: PRODUCT USED FOR UNKNOWN INDICATION
     Dosage: UNK
     Route: 065
  7. INDERAL [Concomitant]
     Active Substance: PROPRANOLOL HYDROCHLORIDE
     Indication: PRODUCT USED FOR UNKNOWN INDICATION
     Dosage: UNK
     Route: 065
  8. MAVENCLAD [Suspect]
     Active Substance: CLADRIBINE
     Indication: MULTIPLE SCLEROSIS
     Dosage: WEEK ONE THERAPY: TWO TABLET DAILY FOR 5 DAYS.
     Dates: start: 20210114

REACTIONS (6)
  - Lymphopenia [Recovering/Resolving]
  - Neutrophil count decreased [Unknown]
  - Haemoglobin decreased [Unknown]
  - COVID-19 [Unknown]
  - Leukopenia [Recovered/Resolved]
  - Asthenia [Unknown]

NARRATIVE: CASE EVENT DATE: 20210225
